FAERS Safety Report 16040512 (Version 1)
Quarter: 2019Q1

REPORT INFORMATION
  Report Type: Spontaneous
  Country: US (occurrence: US)
  Receive Date: 20190306
  Receipt Date: 20190306
  Transmission Date: 20190418
  Serious: Yes (Other)
  Sender: FDA-Public Use
  Company Number: US-PFIZER INC-2019089484

PATIENT
  Age: 54 Year
  Sex: Female
  Weight: 89.8 kg

DRUGS (3)
  1. XGEVA [Concomitant]
     Active Substance: DENOSUMAB
     Indication: BONE DISORDER
     Dosage: UNK
  2. FASLODEX [Suspect]
     Active Substance: FULVESTRANT
     Indication: BREAST CANCER METASTATIC
     Dosage: UNK (TWO SHOTS)
  3. IBRANCE [Suspect]
     Active Substance: PALBOCICLIB
     Indication: BREAST CANCER METASTATIC
     Dosage: 100 MG, CYCLIC (ONE TIME A DAY FOR 21 DAYS)
     Dates: start: 201507

REACTIONS (4)
  - Blood oestrogen increased [Unknown]
  - Lower limb fracture [Unknown]
  - Osteopenia [Unknown]
  - Overweight [Unknown]

NARRATIVE: CASE EVENT DATE: 20181015
